FAERS Safety Report 17639954 (Version 1)
Quarter: 2020Q2

REPORT INFORMATION
  Report Type: Report from Study
  Country: KR (occurrence: KR)
  Receive Date: 20200407
  Receipt Date: 20200407
  Transmission Date: 20200713
  Serious: Yes (Hospitalization, Other)
  Sender: FDA-Public Use
  Company Number: KR-CELGENEUS-KOR-20200309741

PATIENT
  Age: 57 Year
  Sex: Female
  Weight: 48.9 kg

DRUGS (15)
  1. FENTANYL. [Concomitant]
     Active Substance: FENTANYL
     Indication: FLANK PAIN
     Dosage: 12 MICROGRAM
     Route: 048
     Dates: start: 20200228
  2. ASPRIN [Concomitant]
     Active Substance: ASPIRIN
     Indication: PRODUCT USED FOR UNKNOWN INDICATION
     Dosage: 100 MILLIGRAM
     Route: 048
     Dates: start: 20200320, end: 20200405
  3. FLOZOLE [Concomitant]
     Indication: PRODUCT USED FOR UNKNOWN INDICATION
     Dosage: 50 MILLIGRAM
     Route: 048
     Dates: start: 20200320, end: 20200405
  4. NEUTROGIN [Concomitant]
     Active Substance: LENOGRASTIM
     Indication: NEUTROPENIA
     Route: 058
     Dates: start: 20200306, end: 20200321
  5. NORVASC [Concomitant]
     Active Substance: AMLODIPINE BESYLATE
     Indication: HYPERTENSION
     Dosage: 5 MILLIGRAM
     Route: 048
     Dates: start: 20200316
  6. POMALIDOMIDE [Suspect]
     Active Substance: POMALIDOMIDE
     Indication: PLASMA CELL MYELOMA
     Dosage: 3 MILLIGRAM
     Route: 048
     Dates: start: 20200221, end: 20200405
  7. OMEPRAZOLE. [Concomitant]
     Active Substance: OMEPRAZOLE
     Indication: PRODUCT USED FOR UNKNOWN INDICATION
     Dosage: 60 MILLIGRAM
     Route: 048
     Dates: start: 20200221, end: 20200310
  8. GLINIL M [Concomitant]
     Indication: CONSTIPATION
     Dosage: 500 MG
     Route: 048
     Dates: start: 20200228, end: 20200307
  9. LYRICA [Concomitant]
     Active Substance: PREGABALIN
     Indication: PARAESTHESIA
     Dosage: 30 MILLIGRAM
     Route: 048
     Dates: start: 20200331
  10. DEXAMETHASONE. [Suspect]
     Active Substance: DEXAMETHASONE
     Indication: PLASMA CELL MYELOMA
     Dosage: 4 MILLIGRAM
     Route: 041
     Dates: start: 20200221, end: 20200405
  11. MEGACE [Concomitant]
     Active Substance: MEGESTROL ACETATE
     Indication: DECREASED APPETITE
     Dosage: 5 MILLILITER
     Route: 048
     Dates: start: 20200316
  12. DUPHALAC [Concomitant]
     Active Substance: LACTULOSE
     Indication: CONSTIPATION
     Dosage: 30 MILLILITER
     Route: 048
     Dates: start: 20200314
  13. ZOLENIC [Concomitant]
     Indication: PRODUCT USED FOR UNKNOWN INDICATION
     Dosage: 4 MILLIGRAM
     Route: 041
     Dates: start: 20200320
  14. SEPTRIN [Concomitant]
     Active Substance: SULFAMETHOXAZOLE\TRIMETHOPRIM
     Indication: PRODUCT USED FOR UNKNOWN INDICATION
     Dosage: 400/80 MG
     Route: 048
     Dates: start: 20200320, end: 20200405
  15. ITOPIDE [Concomitant]
     Indication: NAUSEA
     Dosage: 150 MILLIGRAM
     Route: 048
     Dates: start: 20200221, end: 20200307

REACTIONS (2)
  - Deep vein thrombosis [Not Recovered/Not Resolved]
  - Muscular weakness [Recovering/Resolving]

NARRATIVE: CASE EVENT DATE: 20200320
